FAERS Safety Report 25763268 (Version 3)
Quarter: 2025Q4

REPORT INFORMATION
  Report Type: Report from Study
  Country: US (occurrence: US)
  Receive Date: 20250905
  Receipt Date: 20251217
  Transmission Date: 20260118
  Serious: Yes (Other)
  Sender: SYNDAX
  Company Number: US-SYNDAX PHARMACEUTICALS, INC.-2025US000676

PATIENT
  Sex: Male

DRUGS (1)
  1. REVUFORJ [Suspect]
     Active Substance: REVUMENIB CITRATE
     Indication: Product used for unknown indication
     Dosage: 270 MILLIGRAM (160 MG AND 110 MG), BID
     Route: 048
     Dates: start: 20250826

REACTIONS (9)
  - Haemoglobin decreased [Unknown]
  - Abnormal dreams [Unknown]
  - Hunger [Unknown]
  - Thirst [Unknown]
  - Pollakiuria [Unknown]
  - Taste disorder [Unknown]
  - Herpes zoster [Unknown]
  - Fatigue [Unknown]
  - Vomiting [Unknown]
